FAERS Safety Report 8321322-8 (Version None)
Quarter: 2012Q2

REPORT INFORMATION
  Report Type: 
  Country: None (occurrence: None)
  Receive Date: 20120430
  Receipt Date: 20120425
  Transmission Date: 20120825
  Serious: Yes (Death, Hospitalization)
  Sender: FDA-Public Use
  Company Number: US-CELGENEUS-163-21880-11072364

PATIENT
  Sex: Male
  Weight: 80.358 kg

DRUGS (15)
  1. NEXIUM [Concomitant]
     Dosage: 40 MILLIGRAM
     Route: 048
     Dates: start: 20100211
  2. MULTI-VITAMINS [Concomitant]
     Route: 048
     Dates: start: 20110310
  3. ARICEPT [Concomitant]
     Indication: PARKINSON'S DISEASE
     Dosage: 10 MILLIGRAM
     Route: 065
     Dates: start: 20100524
  4. METOPROLOL TARTRATE [Concomitant]
     Route: 065
     Dates: start: 20081126
  5. VALIUM [Concomitant]
     Dosage: 5 MILLIGRAM
     Route: 048
     Dates: start: 20100329
  6. VYTORIN [Concomitant]
     Dosage: 10-40MG
     Route: 065
     Dates: start: 20110317
  7. COMPAZINE [Concomitant]
     Indication: NAUSEA
     Dosage: 10 MILLIGRAM
     Route: 065
     Dates: start: 20100107
  8. REVLIMID [Suspect]
     Dosage: 5 MILLIGRAM
     Route: 048
     Dates: start: 20110721, end: 20110804
  9. XYLOCAINE/BENADRYL/MAALOX/NYSTATIN [Concomitant]
     Route: 065
     Dates: start: 20091221
  10. EFFEXOR [Concomitant]
     Route: 065
     Dates: start: 20081126
  11. VITAMIN B-12 [Concomitant]
     Dosage: 100 MICROGRAM
     Route: 065
     Dates: start: 20110317
  12. REVLIMID [Suspect]
     Indication: MYELODYSPLASTIC SYNDROME
     Dosage: 15 MILLIGRAM
     Route: 048
     Dates: start: 20110716, end: 20110718
  13. PROCRIT [Concomitant]
     Dosage: 60000 MICROGRAM
     Route: 065
     Dates: start: 20090101
  14. PROTONIX [Concomitant]
     Dosage: 40 MILLIGRAM
     Route: 048
     Dates: start: 20100211
  15. NAMENDA [Concomitant]
     Indication: PARKINSON'S DISEASE
     Dosage: 5 MILLIGRAM
     Route: 065
     Dates: start: 20100830

REACTIONS (5)
  - ANAEMIA [None]
  - GASTROINTESTINAL HAEMORRHAGE [None]
  - NEUTROPENIA [None]
  - MYELODYSPLASTIC SYNDROME [None]
  - THROMBOCYTOPENIA [None]
